FAERS Safety Report 19590757 (Version 1)
Quarter: 2021Q3

REPORT INFORMATION
  Report Type: Spontaneous
  Country: US (occurrence: US)
  Receive Date: 20210721
  Receipt Date: 20210721
  Transmission Date: 20211014
  Serious: No
  Sender: FDA-Public Use
  Company Number: US-SA-2021SA234757

PATIENT
  Age: 67 Year
  Sex: Male

DRUGS (3)
  1. JEVTANA [Suspect]
     Active Substance: CABAZITAXEL
     Indication: MALIGNANT URINARY TRACT NEOPLASM
  2. JEVTANA [Suspect]
     Active Substance: CABAZITAXEL
     Indication: BLADDER CANCER STAGE 0, WITH CANCER IN SITU
     Dosage: DRUG STRUCTURE DOSAGE : 5 MG DRUG INTERVAL DOSAGE : ONCE WEEK FOR 6 WKS THEN MONTHLY
     Route: 065
     Dates: start: 20210615
  3. TERRELL [Suspect]
     Active Substance: ISOFLURANE
     Dosage: UNK
     Route: 065

REACTIONS (1)
  - Product use in unapproved indication [Unknown]
